FAERS Safety Report 18746023 (Version 1)
Quarter: 2021Q1

REPORT INFORMATION
  Report Type: Spontaneous
  Country: US (occurrence: US)
  Receive Date: 20210115
  Receipt Date: 20210115
  Transmission Date: 20210419
  Serious: Yes (Hospitalization)
  Sender: FDA-Public Use
  Company Number: US-MYLANLABS-2021M1001756

PATIENT
  Age: 73 Year
  Sex: Female

DRUGS (6)
  1. AMPICILLIN [Suspect]
     Active Substance: AMPICILLIN
     Indication: OSTEOMYELITIS
  2. SULBACTAM [Suspect]
     Active Substance: SULBACTAM
     Indication: OSTEOMYELITIS
     Route: 065
  3. SULBACTAM [Suspect]
     Active Substance: SULBACTAM
     Indication: PROTEUS INFECTION
  4. VANCOMYCIN [Suspect]
     Active Substance: VANCOMYCIN
     Indication: OSTEOMYELITIS
     Route: 065
  5. AMPICILLIN [Suspect]
     Active Substance: AMPICILLIN
     Indication: PROTEUS INFECTION
     Route: 065
  6. VANCOMYCIN [Suspect]
     Active Substance: VANCOMYCIN
     Indication: PROTEUS INFECTION

REACTIONS (2)
  - Renal tubular necrosis [Unknown]
  - Crystal nephropathy [Unknown]
